FAERS Safety Report 14554869 (Version 1)
Quarter: 2018Q1

REPORT INFORMATION
  Report Type: Spontaneous
  Country: US (occurrence: US)
  Receive Date: 20180220
  Receipt Date: 20180220
  Transmission Date: 20180509
  Serious: No
  Sender: FDA-Public Use
  Company Number: US-IMPAX LABORATORIES, INC-2017-IPXL-03234

PATIENT
  Age: 66 Year
  Sex: Female

DRUGS (2)
  1. EZETIMIBE AND SIMVASTATIN [Suspect]
     Active Substance: EZETIMIBE\SIMVASTATIN
     Indication: PRODUCT USED FOR UNKNOWN INDICATION
     Dosage: UNK
     Route: 065
  2. DICLOFENAC [Concomitant]
     Active Substance: DICLOFENAC
     Indication: PRODUCT USED FOR UNKNOWN INDICATION
     Dosage: 75 MG, 2 /DAY
     Route: 065

REACTIONS (8)
  - Cough [Recovering/Resolving]
  - Pruritus [Recovering/Resolving]
  - Muscular weakness [Recovering/Resolving]
  - Dry mouth [Recovering/Resolving]
  - Pain in extremity [Recovering/Resolving]
  - Arthralgia [Recovering/Resolving]
  - Product substitution issue [Unknown]
  - Rhinorrhoea [Recovering/Resolving]
